FAERS Safety Report 9574628 (Version 1)
Quarter: 2013Q4

REPORT INFORMATION
  Report Type: Spontaneous
  Country: US (occurrence: US)
  Receive Date: 20131001
  Receipt Date: 20131001
  Transmission Date: 20140711
  Serious: Yes (Other)
  Sender: FDA-Public Use
  Company Number: US-ELI_LILLY_AND_COMPANY-US201309007807

PATIENT
  Sex: Female

DRUGS (3)
  1. CYMBALTA [Suspect]
     Indication: PANIC ATTACK
     Dosage: 90 MG, UNKNOWN
     Route: 065
  2. CYMBALTA [Suspect]
     Indication: DEPRESSION
     Dosage: 120 MG, UNKNOWN
     Route: 065
  3. CYMBALTA [Suspect]
     Dosage: 90 MG, UNKNOWN
     Route: 065

REACTIONS (7)
  - Panic attack [Unknown]
  - Ear infection [Unknown]
  - Panic disorder [Unknown]
  - Irritability [Unknown]
  - Insomnia [Unknown]
  - Vertigo [Unknown]
  - Drug effect decreased [Unknown]
